FAERS Safety Report 6464078-6 (Version None)
Quarter: 2009Q4

REPORT INFORMATION
  Report Type: 
  Country: None (occurrence: None)
  Receive Date: 20091130
  Receipt Date: 20091130
  Transmission Date: 20100525
  Serious: Yes (Life-Threatening)
  Sender: FDA-Public Use
  Company Number: None

PATIENT
  Age: 27 Year
  Sex: Male

DRUGS (5)
  1. FLUOXETINE [Suspect]
     Indication: DEPRESSION
     Dosage: 20 QD PO
     Route: 048
     Dates: start: 20091023, end: 20091025
  2. PROPRANOLOL [Concomitant]
  3. LAMOTRIGINE [Concomitant]
  4. NALTREXONE HYDROCHLORIDE [Concomitant]
  5. PRAZOSIN HYDROCHLORIDE [Concomitant]

REACTIONS (1)
  - DYSTONIA [None]
